FAERS Safety Report 4885463-X (Version None)
Quarter: 2005Q4

REPORT INFORMATION
  Report Type: 
  Country: None (occurrence: None)
  Receive Date: 20051216
  Receipt Date: 20050912
  Transmission Date: 20060501
  Serious: Yes (Other)
  Sender: FDA-Public Use
  Company Number: 2005115072

PATIENT
  Age: 60 Year
  Sex: Male
  Weight: 92.9874 kg

DRUGS (6)
  1. ARTHROTEC [Suspect]
     Indication: OSTEOARTHRITIS
     Dosage: 50 MG (50 MG, 1 IN 1 D)
     Dates: start: 20010101, end: 20040120
  2. COZAAR [Concomitant]
  3. ZYRTEC [Concomitant]
  4. SYNTHROID [Concomitant]
  5. SINGULAIR ^MERCK^ (MONTELUKAST SODIUM) [Concomitant]
  6. GEMFIBROZIL [Concomitant]

REACTIONS (3)
  - BLOOD UREA INCREASED [None]
  - GASTROINTESTINAL HAEMORRHAGE [None]
  - OCCULT BLOOD POSITIVE [None]
